APPROVED DRUG PRODUCT: ATORVASTATIN CALCIUM
Active Ingredient: ATORVASTATIN CALCIUM
Strength: EQ 20MG BASE
Dosage Form/Route: TABLET;ORAL
Application: A078773 | Product #002
Applicant: TEVA PHARMACEUTICALS USA
Approved: May 29, 2012 | RLD: No | RS: No | Type: DISCN